FAERS Safety Report 7720191-4 (Version None)
Quarter: 2011Q3

REPORT INFORMATION
  Report Type: 
  Country: None (occurrence: None)
  Receive Date: 20110826
  Receipt Date: 20110826
  Transmission Date: 20111222
  Serious: No
  Sender: FDA-Public Use
  Company Number: None

PATIENT
  Sex: Male
  Weight: 158.759 kg

DRUGS (2)
  1. OXYCONTIN [Suspect]
     Indication: INTERVERTEBRAL DISC DISORDER
     Dosage: 1-2 TID PO
     Route: 048
  2. OXYCONTIN [Suspect]
     Indication: OSTEOARTHRITIS
     Dosage: 1-2 TID PO
     Route: 048

REACTIONS (3)
  - PRODUCT QUALITY ISSUE [None]
  - NO ADVERSE EVENT [None]
  - DRUG INEFFECTIVE [None]
